FAERS Safety Report 12656503 (Version 1)
Quarter: 2016Q3

REPORT INFORMATION
  Report Type: Spontaneous
  Country: GB (occurrence: GB)
  Receive Date: 20160816
  Receipt Date: 20160816
  Transmission Date: 20161109
  Serious: Yes (Hospitalization, Other)
  Sender: FDA-Public Use
  Company Number: GB-MYLANLABS-2016M1033472

PATIENT

DRUGS (6)
  1. CITALOPRAM [Suspect]
     Active Substance: CITALOPRAM HYDROBROMIDE
     Dosage: 20 MG, UNK
     Route: 048
  2. SULPHASALAZINE [Concomitant]
     Active Substance: SULFASALAZINE
     Dosage: UNK
  3. CITALOPRAM [Suspect]
     Active Substance: CITALOPRAM HYDROBROMIDE
     Dosage: 10 MG, UNK
     Route: 048
  4. CITALOPRAM [Suspect]
     Active Substance: CITALOPRAM HYDROBROMIDE
     Indication: ANXIETY
     Dosage: ALTERNATING WITH 7.5MG
     Route: 048
  5. CITALOPRAM [Suspect]
     Active Substance: CITALOPRAM HYDROBROMIDE
     Indication: ANXIETY
     Dosage: ALTERNATING WITH 5MG
     Route: 048
  6. PREDNISOLONE ACTAVIS [Concomitant]
     Active Substance: PREDNISOLONE
     Dosage: UNK
     Dates: start: 1997

REACTIONS (5)
  - Heart rate abnormal [Unknown]
  - Ventricular tachycardia [Not Recovered/Not Resolved]
  - Blood pressure decreased [Unknown]
  - Syncope [Unknown]
  - Palpitations [Not Recovered/Not Resolved]
